FAERS Safety Report 13428173 (Version 1)
Quarter: 2017Q2

REPORT INFORMATION
  Report Type: Spontaneous
  Country: MX (occurrence: MX)
  Receive Date: 20170411
  Receipt Date: 20170411
  Transmission Date: 20170830
  Serious: Yes (Other)
  Sender: FDA-Public Use
  Company Number: MX-PFIZER INC-2017151564

PATIENT
  Age: 9 Year
  Sex: Female

DRUGS (1)
  1. DALACIN C [Suspect]
     Active Substance: CLINDAMYCIN PHOSPHATE
     Dosage: 1 DF, 3X/DAY

REACTIONS (3)
  - Poisoning [Unknown]
  - Stomatococcal infection [Unknown]
  - Poor quality drug administered [Unknown]
